FAERS Safety Report 13747466 (Version 1)
Quarter: 2017Q3

REPORT INFORMATION
  Report Type: Spontaneous
  Country: DE (occurrence: DE)
  Receive Date: 20170712
  Receipt Date: 20170712
  Transmission Date: 20171127
  Serious: Yes (Other)
  Sender: FDA-Public Use
  Company Number: DE-ALLERGAN-1728831US

PATIENT
  Age: 42 Year
  Sex: Female

DRUGS (2)
  1. MESALAZINE UNK [Suspect]
     Active Substance: MESALAMINE
     Indication: COLITIS ULCERATIVE
     Dosage: UNK
  2. MESALAZINE UNK [Suspect]
     Active Substance: MESALAMINE
     Dosage: 1000 MG, TID

REACTIONS (3)
  - Linear IgA disease [Unknown]
  - Colitis ulcerative [Unknown]
  - Neutrophilic dermatosis [Unknown]
